FAERS Safety Report 4883075-5 (Version None)
Quarter: 2006Q1

REPORT INFORMATION
  Report Type: 
  Country: None (occurrence: None)
  Receive Date: 20060118
  Receipt Date: 20040106
  Transmission Date: 20060701
  Serious: Yes (Death)
  Sender: FDA-Public Use
  Company Number: 200410010JP

PATIENT
  Age: 62 Year
  Sex: Female
  Weight: 48 kg

DRUGS (10)
  1. ARAVA [Suspect]
     Indication: RHEUMATOID ARTHRITIS
     Route: 048
     Dates: start: 20031022, end: 20031024
  2. ARAVA [Suspect]
     Route: 048
     Dates: start: 20031025, end: 20031224
  3. TAGAMET [Concomitant]
     Indication: GASTRIC ULCER
     Route: 048
     Dates: start: 20030827
  4. VOLTAREN [Concomitant]
     Indication: RHEUMATOID ARTHRITIS
     Route: 048
     Dates: start: 20030827
  5. PREDNISOLONE [Concomitant]
     Indication: RHEUMATOID ARTHRITIS
     Route: 048
     Dates: start: 20030827
  6. PREDNISOLONE [Concomitant]
     Route: 048
     Dates: start: 20030827
  7. MUCOSTA [Concomitant]
     Indication: GASTRIC ULCER
     Route: 048
     Dates: start: 20030827
  8. MINOCYCLINE HCL [Concomitant]
     Indication: RHEUMATOID ARTHRITIS
     Route: 048
     Dates: start: 20030827
  9. AZULFIDINE [Concomitant]
     Indication: RHEUMATOID ARTHRITIS
     Route: 048
     Dates: start: 20030827
  10. BONALON [Concomitant]
     Indication: OSTEOPOROSIS PROPHYLAXIS
     Route: 048
     Dates: start: 20030827

REACTIONS (18)
  - ACIDOSIS [None]
  - ALANINE AMINOTRANSFERASE INCREASED [None]
  - ASPARTATE AMINOTRANSFERASE INCREASED [None]
  - ASPERGILLOSIS [None]
  - BLOOD ALKALINE PHOSPHATASE INCREASED [None]
  - BLOOD BILIRUBIN INCREASED [None]
  - BLOOD LACTATE DEHYDROGENASE INCREASED [None]
  - BLOOD POTASSIUM DECREASED [None]
  - CHOLECYSTITIS INFECTIVE [None]
  - DRUG LEVEL INCREASED [None]
  - GAMMA-GLUTAMYLTRANSFERASE INCREASED [None]
  - HEART RATE DECREASED [None]
  - IMMUNOSUPPRESSION [None]
  - INFUSION SITE EXTRAVASATION [None]
  - INTERSTITIAL LUNG DISEASE [None]
  - PANCREATITIS [None]
  - PLATELET COUNT DECREASED [None]
  - PNEUMOMEDIASTINUM [None]
